FAERS Safety Report 23189264 (Version 1)
Quarter: 2023Q4

REPORT INFORMATION
  Report Type: Spontaneous
  Country: US (occurrence: US)
  Receive Date: 20231115
  Receipt Date: 20231115
  Transmission Date: 20240110
  Serious: No
  Sender: FDA-Public Use
  Company Number: US-drreddys-SPO/USA/23/0179466

PATIENT
  Sex: Male

DRUGS (6)
  1. CARBIDOPA AND LEVODOPA [Suspect]
     Active Substance: CARBIDOPA\LEVODOPA
     Indication: Parkinsonism
     Dosage: 25 MG-100 MG 1 TABLET WITH CARBIDOPA 25 MG TAKEN ORALLY FOUR TIMES A DAY, ONDANSETRON 8 MG TAKEN ORA
     Route: 048
  2. AMANTADINE [Suspect]
     Active Substance: AMANTADINE
     Indication: Parkinsonism
  3. ONDANSETRON [Concomitant]
     Active Substance: ONDANSETRON
     Indication: Product used for unknown indication
     Dosage: TAKEN ORALLY 30 MIN PRIOR TO CARBIDOPA-LEVODOPA
     Route: 048
  4. CHENODIOL [Concomitant]
     Active Substance: CHENODIOL
     Indication: Xanthomatosis
     Route: 048
  5. PROPRANOLOL [Concomitant]
     Active Substance: PROPRANOLOL HYDROCHLORIDE
     Indication: Portal hypertension
  6. ARIPIPRAZOLE [Concomitant]
     Active Substance: ARIPIPRAZOLE
     Indication: Product used for unknown indication
     Dates: start: 2010

REACTIONS (1)
  - Gastrointestinal disorder [Unknown]
